FAERS Safety Report 5912093-0 (Version None)
Quarter: 2008Q4

REPORT INFORMATION
  Report Type: 
  Country: None (occurrence: None)
  Receive Date: 20081007
  Receipt Date: 20081007
  Transmission Date: 20090506
  Serious: No
  Sender: FDA-Public Use
  Company Number: None

PATIENT
  Sex: Female

DRUGS (2)
  1. ROPINIROLE [Suspect]
     Indication: RESTLESS LEGS SYNDROME
     Dosage: 1 MG # 30 1 PO QHS
     Route: 048
     Dates: start: 20080601
  2. EFFEXOR [Concomitant]

REACTIONS (1)
  - NO THERAPEUTIC RESPONSE [None]
